FAERS Safety Report 7858709-3 (Version None)
Quarter: 2011Q4

REPORT INFORMATION
  Report Type: 
  Country: None (occurrence: None)
  Receive Date: 20111027
  Receipt Date: 20111017
  Transmission Date: 20120403
  Serious: Yes (Other)
  Sender: FDA-Public Use
  Company Number: US-JNJFOC-20111008664

PATIENT
  Sex: Female
  Weight: 43.55 kg

DRUGS (1)
  1. TOPAMAX [Suspect]
     Indication: MIGRAINE PROPHYLAXIS
     Route: 048
     Dates: start: 20100801, end: 20111013

REACTIONS (4)
  - BRONCHITIS [None]
  - VAGINAL INFECTION [None]
  - LUPUS-LIKE SYNDROME [None]
  - ARTHRALGIA [None]
